FAERS Safety Report 17332434 (Version 1)
Quarter: 2020Q1

REPORT INFORMATION
  Report Type: Spontaneous
  Country: US (occurrence: US)
  Receive Date: 20200124
  Receipt Date: 20200124
  Transmission Date: 20200409
  Serious: No
  Sender: FDA-Public Use
  Company Number: None

PATIENT
  Age: 25 Year
  Sex: Male
  Weight: 67.5 kg

DRUGS (1)
  1. EXTENZE PLUS DIETARY SUPPLEMENT MALE ENHANCEMENT [Suspect]
     Active Substance: DIETARY SUPPLEMENT
     Indication: ERECTILE DYSFUNCTION
     Dosage: ?          QUANTITY:1 TABLET(S);?
     Route: 048
     Dates: start: 20200124, end: 20200124

REACTIONS (8)
  - Vomiting [None]
  - Hyperhidrosis [None]
  - Blood pressure decreased [None]
  - Piloerection [None]
  - Feeling hot [None]
  - Feeding disorder [None]
  - Fluid intake reduced [None]
  - Chills [None]

NARRATIVE: CASE EVENT DATE: 20200124
